FAERS Safety Report 12495662 (Version 4)
Quarter: 2017Q1

REPORT INFORMATION
  Report Type: Spontaneous
  Country: DE (occurrence: DE)
  Receive Date: 20160624
  Receipt Date: 20170109
  Transmission Date: 20170428
  Serious: Yes (Other)
  Sender: FDA-Public Use
  Company Number: DE-CIPLA LTD.-2016DE08072

PATIENT

DRUGS (2)
  1. QUETIAPINE. [Suspect]
     Active Substance: QUETIAPINE
     Indication: DEPRESSION
     Dosage: 600 MG, UNK
     Route: 064
     Dates: start: 20090101, end: 20090919
  2. CITALOPRAM [Suspect]
     Active Substance: CITALOPRAM HYDROBROMIDE
     Indication: DEPRESSION
     Dosage: 60 MG, UNK
     Route: 064
     Dates: start: 20090101, end: 20090919

REACTIONS (4)
  - Foetal exposure during pregnancy [Unknown]
  - Neonatal respiratory distress syndrome [Recovered/Resolved]
  - Oxygen saturation decreased [Recovered/Resolved]
  - Agitation neonatal [Recovering/Resolving]

NARRATIVE: CASE EVENT DATE: 20090919
